FAERS Safety Report 23105759 (Version 1)
Quarter: 2023Q4

REPORT INFORMATION
  Report Type: Spontaneous
  Country: US (occurrence: None)
  Receive Date: 20231024
  Receipt Date: 20231024
  Transmission Date: 20240110
  Serious: Yes (Hospitalization)
  Sender: FDA-Public Use
  Company Number: None

PATIENT
  Age: 78 Year
  Sex: Male

DRUGS (1)
  1. DAPTOMYCIN [Suspect]
     Active Substance: DAPTOMYCIN
     Dates: start: 20220225, end: 20220322

REACTIONS (3)
  - Dyspnoea [None]
  - Liver function test increased [None]
  - Pneumonia [None]

NARRATIVE: CASE EVENT DATE: 20220324
